FAERS Safety Report 21281240 (Version 1)
Quarter: 2022Q3

REPORT INFORMATION
  Report Type: Spontaneous
  Country: US (occurrence: US)
  Receive Date: 20220901
  Receipt Date: 20220901
  Transmission Date: 20221027
  Serious: No
  Sender: FDA-Public Use
  Company Number: US-ALLERGAN-2135727US

PATIENT
  Age: 52 Year
  Sex: Male

DRUGS (6)
  1. FETZIMA [Suspect]
     Active Substance: LEVOMILNACIPRAN HYDROCHLORIDE
     Indication: Depression
     Dosage: 40 MG, QD
     Route: 048
     Dates: start: 202110
  2. unspecified antidepressants ((SSRI^s and SNRI^s) [Concomitant]
     Dosage: UNK
  3. SONATA [Concomitant]
     Active Substance: ZALEPLON
     Indication: Sleep disorder
  4. SEROQUEL [Concomitant]
     Active Substance: QUETIAPINE FUMARATE
     Indication: Sleep disorder
     Dosage: 300 MG, QHS
  5. LAMICTAL [Concomitant]
     Active Substance: LAMOTRIGINE
  6. VALIUM [Concomitant]
     Active Substance: DIAZEPAM
     Dosage: UNK, PRN

REACTIONS (2)
  - Intentional product use issue [Unknown]
  - Drug ineffective [Unknown]

NARRATIVE: CASE EVENT DATE: 20211001
